FAERS Safety Report 23367213 (Version 1)
Quarter: 2024Q1

REPORT INFORMATION
  Report Type: Spontaneous
  Country: GB (occurrence: GB)
  Receive Date: 20240104
  Receipt Date: 20240104
  Transmission Date: 20240409
  Serious: Yes (Life-Threatening, Other)
  Sender: FDA-Public Use
  Company Number: None

PATIENT
  Sex: Female

DRUGS (1)
  1. DOXYCYCLINE [Suspect]
     Active Substance: DOXYCYCLINE
     Dosage: UNK

REACTIONS (8)
  - Swelling [Recovering/Resolving]
  - Anaphylactoid reaction [Unknown]
  - Pyrexia [Unknown]
  - Malaise [Unknown]
  - Dizziness [Unknown]
  - Tension headache [Unknown]
  - Mouth swelling [Unknown]
  - Anxiety [Unknown]

NARRATIVE: CASE EVENT DATE: 20231222
